FAERS Safety Report 8958649 (Version 1)
Quarter: 2012Q4

REPORT INFORMATION
  Report Type: Spontaneous
  Country: GB (occurrence: None)
  Receive Date: 20121128
  Receipt Date: 20121128
  Transmission Date: 20130627
  Serious: Yes (Death)
  Sender: FDA-Public Use
  Company Number: 2012-01717

PATIENT

DRUGS (3)
  1. SIMVASTATIN [Suspect]
     Indication: HIGH CHOLESTEROL
     Dosage: Unknown (40 mg, UNK), Oral
     Route: 048
     Dates: start: 201202, end: 201203
  2. MIRTAZAPINE [Concomitant]
  3. OLANZAPINE (UNKNOWN-UNK) [Concomitant]

REACTIONS (2)
  - Depression [None]
  - Completed suicide [None]
